FAERS Safety Report 13790660 (Version 1)
Quarter: 2017Q3

REPORT INFORMATION
  Report Type: Spontaneous
  Country: US (occurrence: US)
  Receive Date: 20170725
  Receipt Date: 20170725
  Transmission Date: 20171127
  Serious: No
  Sender: FDA-Public Use
  Company Number: US-GALDERMA-US16007959

PATIENT
  Age: 13 Year
  Sex: Male

DRUGS (1)
  1. ADAPALENE (ADAPALENE) [Suspect]
     Active Substance: ADAPALENE
     Indication: MELANOCYTIC NAEVUS
     Route: 061

REACTIONS (1)
  - Intentional product use issue [Recovered/Resolved]
